FAERS Safety Report 18727938 (Version 3)
Quarter: 2021Q3

REPORT INFORMATION
  Report Type: Spontaneous
  Country: US (occurrence: US)
  Receive Date: 20210112
  Receipt Date: 20210903
  Transmission Date: 20211014
  Serious: Yes (Hospitalization, Other)
  Sender: FDA-Public Use
  Company Number: US-DRREDDYS-USA/USA/21/0130968

PATIENT
  Age: 31 Year
  Sex: Male

DRUGS (2)
  1. ACETYLCYSTEINE. [Concomitant]
     Active Substance: ACETYLCYSTEINE
     Indication: PRODUCT USED FOR UNKNOWN INDICATION
  2. DEFEROXAMINE MESYLATE. [Suspect]
     Active Substance: DEFEROXAMINE MESYLATE
     Indication: INTENTIONAL OVERDOSE

REACTIONS (7)
  - Drug ineffective [Unknown]
  - Lethargy [Unknown]
  - Haemodynamic instability [Unknown]
  - Acidosis [Unknown]
  - Hypotension [Unknown]
  - Unresponsive to stimuli [Unknown]
  - Haemorrhage [Unknown]
